FAERS Safety Report 21604848 (Version 1)
Quarter: 2022Q4

REPORT INFORMATION
  Report Type: Spontaneous
  Country: CZ (occurrence: CZ)
  Receive Date: 20221116
  Receipt Date: 20221116
  Transmission Date: 20230113
  Serious: Yes (Other)
  Sender: FDA-Public Use
  Company Number: CZ-TAKEDA-2022TUS084524

PATIENT
  Age: 28 Year
  Sex: Female

DRUGS (1)
  1. HYQVIA [Suspect]
     Active Substance: HUMAN IMMUNOGLOBULIN G\HYALURONIDASE RECOMBINANT HUMAN
     Indication: Product used for unknown indication
     Dosage: 5 GRAM
     Route: 065

REACTIONS (2)
  - Haemorrhage [Unknown]
  - Pregnancy [Unknown]

NARRATIVE: CASE EVENT DATE: 20220101
